FAERS Safety Report 21397919 (Version 1)
Quarter: 2022Q3

REPORT INFORMATION
  Report Type: Spontaneous
  Country: DE (occurrence: DE)
  Receive Date: 20220930
  Receipt Date: 20220930
  Transmission Date: 20221027
  Serious: Yes (Hospitalization)
  Sender: FDA-Public Use
  Company Number: DE-IBSA PHARMA INC.-2022IBS000293

PATIENT

DRUGS (1)
  1. LEVOTHYROXINE SODIUM [Suspect]
     Active Substance: LEVOTHYROXINE SODIUM
     Indication: Product used for unknown indication
     Dosage: 112 MICROGRAM
     Route: 048

REACTIONS (4)
  - Product monitoring error [Unknown]
  - Therapeutic drug monitoring analysis not performed [Unknown]
  - Palpitations [Unknown]
  - Dyspnoea [Unknown]
